FAERS Safety Report 17391116 (Version 2)
Quarter: 2021Q3

REPORT INFORMATION
  Report Type: Spontaneous
  Country: IT (occurrence: IT)
  Receive Date: 20200207
  Receipt Date: 20210913
  Transmission Date: 20211014
  Serious: Yes (Hospitalization, Other)
  Sender: FDA-Public Use
  Company Number: IT-MYLANLABS-2020M1013420

PATIENT
  Age: 48 Year
  Sex: Female

DRUGS (7)
  1. CEFTOLOZANE;TAZOBACTAM [Concomitant]
     Active Substance: CEFTOLOZANE SULFATE\TAZOBACTAM SODIUM
     Indication: PSEUDOMONAS INFECTION
     Dosage: UNK
  2. QUIZARTINIB [Concomitant]
     Active Substance: QUIZARTINIB
     Indication: ACUTE MYELOID LEUKAEMIA
     Dosage: UNK
  3. CYTARABINE. [Concomitant]
     Active Substance: CYTARABINE
     Indication: ACUTE MYELOID LEUKAEMIA
     Dosage: UNK
  4. VORICONAZOLE. [Suspect]
     Active Substance: VORICONAZOLE
     Indication: RESPIRATORY TRACT INFECTION FUNGAL
     Dosage: UNK
     Route: 065
  5. AMPHOTERICIN B. [Suspect]
     Active Substance: AMPHOTERICIN B
     Indication: GEOTRICHUM INFECTION
     Dosage: UNK
     Route: 065
  6. ANIDULAFUNGIN [Concomitant]
     Active Substance: ANIDULAFUNGIN
     Indication: ANTIFUNGAL PROPHYLAXIS
     Dosage: UNK
  7. CEFTOLOZANE;TAZOBACTAM [Concomitant]
     Active Substance: CEFTOLOZANE SULFATE\TAZOBACTAM SODIUM
     Dosage: UNK

REACTIONS (4)
  - Necrosis [Unknown]
  - Infection [Recovering/Resolving]
  - Fungal infection [Unknown]
  - Skin lesion [Unknown]
